FAERS Safety Report 10711101 (Version 1)
Quarter: 2015Q1

REPORT INFORMATION
  Report Type: Spontaneous
  Country: US (occurrence: US)
  Receive Date: 20150114
  Receipt Date: 20150114
  Transmission Date: 20150721
  Serious: Yes (Hospitalization)
  Sender: FDA-Public Use
  Company Number: US-ELI_LILLY_AND_COMPANY-US201501002684

PATIENT
  Sex: Female

DRUGS (2)
  1. LANTUS [Concomitant]
     Active Substance: INSULIN GLARGINE
  2. HUMALOG [Suspect]
     Active Substance: INSULIN LISPRO
     Indication: DIABETES MELLITUS
     Dosage: UNK, TID
     Route: 065
     Dates: start: 1998

REACTIONS (7)
  - Blood glucose increased [Unknown]
  - Medication error [Unknown]
  - Benign pancreatic neoplasm [Recovered/Resolved with Sequelae]
  - Arthritis [Not Recovered/Not Resolved]
  - Fatigue [Unknown]
  - Pancreatic disorder [Unknown]
  - Post procedural complication [Unknown]
